FAERS Safety Report 13231802 (Version 1)
Quarter: 2017Q1

REPORT INFORMATION
  Report Type: Spontaneous
  Country: US (occurrence: US)
  Receive Date: 20170214
  Receipt Date: 20170214
  Transmission Date: 20170428
  Serious: No
  Sender: FDA-Public Use
  Company Number: ALCN2017US001312

PATIENT
  Sex: Female

DRUGS (1)
  1. SYSTANE GELDROPS [Suspect]
     Active Substance: POLYETHYLENE GLYCOL 400\PROPYLENE GLYCOL
     Indication: PRODUCT USED FOR UNKNOWN INDICATION
     Route: 047

REACTIONS (4)
  - Eyelid margin crusting [Recovered/Resolved]
  - Eyelid oedema [Recovered/Resolved]
  - Eyelids pruritus [Recovered/Resolved]
  - Erythema of eyelid [Recovered/Resolved]
